FAERS Safety Report 6338627-2 (Version None)
Quarter: 2009Q3

REPORT INFORMATION
  Report Type: 
  Country: None (occurrence: None)
  Receive Date: 20090903
  Receipt Date: 20070802
  Transmission Date: 20100115
  Serious: Yes (Other)
  Sender: FDA-Public Use
  Company Number: US-ASTRAZENECA-2007UW02089

PATIENT
  Age: 18107 Day
  Sex: Male
  Weight: 121.6 kg

DRUGS (20)
  1. SEROQUEL [Suspect]
     Indication: BIPOLAR DISORDER
     Route: 048
     Dates: start: 20010101
  2. SEROQUEL [Suspect]
     Indication: BIPOLAR I DISORDER
     Route: 048
     Dates: start: 20010101
  3. SEROQUEL [Suspect]
     Indication: INSOMNIA
     Route: 048
     Dates: start: 20010101
  4. SEROQUEL [Suspect]
     Dosage: 400 MG TO 600 MG DAILY
     Route: 048
     Dates: start: 20010729
  5. SEROQUEL [Suspect]
     Dosage: 400 MG TO 600 MG DAILY
     Route: 048
     Dates: start: 20010729
  6. SEROQUEL [Suspect]
     Dosage: 400 MG TO 600 MG DAILY
     Route: 048
     Dates: start: 20010729
  7. DETROL [Concomitant]
     Dates: start: 20010729
  8. METHADONE HCL [Concomitant]
     Dosage: 56 MG, 60 MG, 70 MG DAILY
     Route: 048
     Dates: start: 20000101
  9. LITHIUM CARBONATE [Concomitant]
     Dosage: 600 - 1200 MG DAILY
     Route: 048
     Dates: start: 20010729
  10. WELLBUTRIN [Concomitant]
     Route: 048
     Dates: start: 20010729
  11. KLONOPIN [Concomitant]
     Dosage: 2 - 3 MG DAILY
     Route: 048
     Dates: start: 20010729
  12. COLACE [Concomitant]
     Route: 048
     Dates: start: 20010729
  13. PERCOCET [Concomitant]
     Indication: BREAKTHROUGH PAIN
     Dosage: ONE TO TWO EVERY 4 HOURS AS REQUIRED
     Route: 048
     Dates: start: 20010729
  14. ZESTRIL [Concomitant]
     Route: 048
     Dates: start: 20040108
  15. PROZAC [Concomitant]
     Dates: start: 20040108
  16. PROTONIX [Concomitant]
     Dates: start: 20040903
  17. PROVIGIL [Concomitant]
     Dates: start: 20040903
  18. ASPIRIN [Concomitant]
     Route: 048
     Dates: start: 20040903
  19. ZOCOR [Concomitant]
     Route: 048
     Dates: start: 20040903
  20. TRAZODONE [Concomitant]
     Indication: SLEEP DISORDER
     Route: 048
     Dates: start: 19981207

REACTIONS (35)
  - APPENDICITIS [None]
  - BALANOPOSTHITIS [None]
  - BLOOD CHOLESTEROL INCREASED [None]
  - CARPAL TUNNEL SYNDROME [None]
  - CELLULITIS [None]
  - CEREBROVASCULAR ACCIDENT [None]
  - CHEST PAIN [None]
  - DIABETES MELLITUS [None]
  - DRUG DEPENDENCE [None]
  - DRUG HYPERSENSITIVITY [None]
  - ERECTILE DYSFUNCTION [None]
  - EXCORIATION [None]
  - GASTRIC DISORDER [None]
  - GASTROOESOPHAGEAL REFLUX DISEASE [None]
  - HEPATITIS B [None]
  - HEPATITIS C [None]
  - HYPERTENSION [None]
  - LEUKOCYTOSIS [None]
  - LIMB INJURY [None]
  - MUSCLE STRAIN [None]
  - NAUSEA [None]
  - NEUROGENIC BLADDER [None]
  - OBESITY [None]
  - OVERDOSE [None]
  - PAIN IN EXTREMITY [None]
  - POLLAKIURIA [None]
  - PSYCHOTIC DISORDER [None]
  - RADIUS FRACTURE [None]
  - SLEEP APNOEA SYNDROME [None]
  - TESTICULAR PAIN [None]
  - TYPE 1 DIABETES MELLITUS [None]
  - URINARY TRACT DISORDER [None]
  - URINARY TRACT INFECTION [None]
  - VENOUS INSUFFICIENCY [None]
  - VOMITING [None]
